FAERS Safety Report 13337080 (Version 1)
Quarter: 2017Q1

REPORT INFORMATION
  Report Type: Spontaneous
  Country: US (occurrence: US)
  Receive Date: 20170314
  Receipt Date: 20170314
  Transmission Date: 20170428
  Serious: No
  Sender: FDA-Public Use
  Company Number: US-JAZZ-2016-US-009895

PATIENT
  Age: 26 Year
  Sex: Male

DRUGS (4)
  1. CLONAZEPAM. [Concomitant]
     Active Substance: CLONAZEPAM
  2. VALPROIC ACID. [Concomitant]
     Active Substance: VALPROIC ACID
  3. OLANZAPINE. [Concomitant]
     Active Substance: OLANZAPINE
  4. CLOZAPINE. [Suspect]
     Active Substance: CLOZAPINE
     Indication: SCHIZOPHRENIA
     Dosage: 100-600 MG DAILY
     Route: 048

REACTIONS (6)
  - Nausea [Unknown]
  - Sedation [Unknown]
  - Abdominal discomfort [Unknown]
  - Musculoskeletal stiffness [Unknown]
  - Drooling [Unknown]
  - Incontinence [Unknown]
